FAERS Safety Report 25960595 (Version 1)
Quarter: 2025Q4

REPORT INFORMATION
  Report Type: Spontaneous
  Country: EU (occurrence: EU)
  Receive Date: 20251027
  Receipt Date: 20251027
  Transmission Date: 20260117
  Serious: Yes (Hospitalization)
  Sender: ACCORD
  Company Number: None

PATIENT
  Age: 51 Year
  Sex: Female
  Weight: 85.2 kg

DRUGS (16)
  1. ATORVASTATIN [Suspect]
     Active Substance: ATORVASTATIN
     Indication: Myocardial infarction
     Dates: start: 20241014, end: 20241113
  2. TOPIRAMATE [Concomitant]
     Active Substance: TOPIRAMATE
     Indication: Migraine
     Dosage: STRENGTH: 50 MG, FILM-COATED TABLET
  3. XANAX [Concomitant]
     Active Substance: ALPRAZOLAM
     Indication: Anxiety
     Dosage: STRENGTH: 0.25 MG, SCORED TABLET
  4. KETOPROFEN [Concomitant]
     Active Substance: KETOPROFEN
     Indication: Migraine
  5. POTASSIUM CHLORIDE [Concomitant]
     Active Substance: POTASSIUM CHLORIDE
     Indication: Hypokalaemia
     Dosage: CAPSULE
  6. TRANSIPEG [Concomitant]
     Indication: Constipation
     Dosage: STRENGTH: 5.9 G, POWDER FOR ORAL SOLUTION IN SACHET
  7. BILASTINE [Concomitant]
     Active Substance: BILASTINE
     Indication: Atopy
  8. ETHINYL ESTRADIOL\LEVONORGESTREL [Concomitant]
     Active Substance: ETHINYL ESTRADIOL\LEVONORGESTREL
     Indication: Hormonal contraception
     Dosage: COATED TABLET
  9. SUMATRIPTAN [Concomitant]
     Active Substance: SUMATRIPTAN
     Indication: Migraine
  10. KARDEGIC [Concomitant]
     Active Substance: ASPIRIN DL-LYSINE
     Indication: Myocardial infarction
     Dosage: STRENGTH: 75 MG, POWDER FOR ORAL SOLUTION IN SACHET
     Dates: start: 20241014, end: 20250401
  11. CLOPIDOGREL [Concomitant]
     Active Substance: CLOPIDOGREL BISULFATE
     Indication: Myocardial infarction
     Dates: start: 20241018, end: 20250109
  12. COUMADIN [Concomitant]
     Active Substance: WARFARIN SODIUM
     Indication: Myocardial infarction
     Dosage: STRENGTH: 5 MG, SCORED TABLET
     Dates: start: 20241017, end: 20250122
  13. BISOPROLOL [Concomitant]
     Active Substance: BISOPROLOL
     Indication: Hypertension
     Dates: start: 20241014
  14. PERINDOPRIL [Concomitant]
     Active Substance: PERINDOPRIL
     Indication: Hypertension
     Dosage: STRENGTH:  5 MG, FILM-COATED TABLET, SCORED
     Dates: start: 20241015, end: 20241208
  15. PANTOPRAZOLE [Concomitant]
     Active Substance: PANTOPRAZOLE
     Indication: Gastrooesophageal reflux prophylaxis
     Dates: start: 20241014
  16. BOTOX [Concomitant]
     Active Substance: ONABOTULINUMTOXINA
     Indication: Essential tremor
     Dosage: STRENGTH: 100 UNITS ALLERGAN, LYOPHILISATE FOR PARENTERAL USE
     Dates: start: 2014

REACTIONS (1)
  - Mixed liver injury [Recovered/Resolved]

NARRATIVE: CASE EVENT DATE: 20241103
